FAERS Safety Report 6569414-8 (Version None)
Quarter: 2010Q1

REPORT INFORMATION
  Report Type: 
  Country: None (occurrence: None)
  Receive Date: 20100202
  Receipt Date: 20100202
  Transmission Date: 20100710
  Serious: Yes (Other)
  Sender: FDA-Public Use
  Company Number: None

PATIENT
  Sex: Female
  Weight: 24.721 kg

DRUGS (2)
  1. CHERATUSSIN AC SYRUP [Suspect]
     Indication: COUGH
     Dosage: TSP FULL EVERY 6 HOURS CHERATUSSIN AC SYRUP
     Dates: start: 20100122
  2. CHERATUSSIN AC SYRUP [Suspect]
     Indication: INFLUENZA
     Dosage: TSP FULL EVERY 6 HOURS CHERATUSSIN AC SYRUP
     Dates: start: 20100122

REACTIONS (2)
  - PRURITUS [None]
  - SWELLING [None]
